FAERS Safety Report 12211776 (Version 1)
Quarter: 2016Q1

REPORT INFORMATION
  Report Type: Spontaneous
  Country: US (occurrence: US)
  Receive Date: 20160325
  Receipt Date: 20160325
  Transmission Date: 20160526
  Serious: Yes (Other)
  Sender: FDA-Public Use
  Company Number: US-ELI_LILLY_AND_COMPANY-US201603006664

PATIENT
  Sex: Male

DRUGS (3)
  1. HUMALOG [Suspect]
     Active Substance: INSULIN LISPRO
     Indication: TYPE 3 DIABETES MELLITUS
     Dosage: 15 U, UNKNOWN
     Route: 065
  2. HUMALOG [Suspect]
     Active Substance: INSULIN LISPRO
     Dosage: 20 U, UNKNOWN
     Route: 065
  3. LEVEMIR [Concomitant]
     Active Substance: INSULIN DETEMIR
     Dosage: 38 U, BID
     Route: 065

REACTIONS (6)
  - Blood pressure increased [Unknown]
  - Dementia [Unknown]
  - Blindness [Unknown]
  - Muscle spasms [Unknown]
  - Attention deficit/hyperactivity disorder [Unknown]
  - Amnesia [Unknown]

NARRATIVE: CASE EVENT DATE: 2010
